FAERS Safety Report 9528792 (Version 2)
Quarter: 2014Q1

REPORT INFORMATION
  Report Type: Spontaneous
  Country: US (occurrence: US)
  Receive Date: 20130917
  Receipt Date: 20140305
  Transmission Date: 20141002
  Serious: Yes (Death, Hospitalization, Other)
  Sender: FDA-Public Use
  Company Number: US-BAXTER-2013BAX035967

PATIENT
  Sex: Female

DRUGS (5)
  1. DIANEAL LOW CALCIUM [Suspect]
     Indication: RENAL FAILURE CHRONIC
     Route: 033
     Dates: start: 2009, end: 20140114
  2. DIANEAL LOW CALCIUM [Suspect]
     Indication: PERITONEAL DIALYSIS
  3. METOPROLOL [Concomitant]
     Indication: CARDIAC FAILURE
     Route: 048
  4. METOPROLOL [Concomitant]
     Route: 048
  5. ISOSORBIDE MONONITRATE [Concomitant]
     Indication: CARDIAC FAILURE
     Route: 048

REACTIONS (4)
  - Cardiac failure congestive [Fatal]
  - Pneumonia [Recovering/Resolving]
  - Cystitis [Recovering/Resolving]
  - Pulmonary oedema [Recovering/Resolving]
